FAERS Safety Report 7937919-0 (Version None)
Quarter: 2011Q4

REPORT INFORMATION
  Report Type: 
  Country: None (occurrence: None)
  Receive Date: 20111123
  Receipt Date: 20111114
  Transmission Date: 20120403
  Serious: Yes (Hospitalization)
  Sender: FDA-Public Use
  Company Number: US-BAYER-US-2006-021474

PATIENT
  Age: 38 Year
  Sex: Female
  Weight: 90 kg

DRUGS (16)
  1. MOTRIN [Concomitant]
  2. ALEVE COLD AND SINUS [Concomitant]
     Indication: NASOPHARYNGITIS
     Dosage: UNK UNK, PRN
     Dates: start: 20060705
  3. ZITHROMAX [Concomitant]
     Indication: SINUSITIS
     Dosage: UNK
     Dates: start: 20060421
  4. NASONEX [Concomitant]
  5. HERBALIFE PRODUCTS [Concomitant]
  6. ADVIL COLD AND SINUS [Concomitant]
  7. TORADOL [Concomitant]
     Dosage: UNK
     Dates: start: 20060709
  8. TRAMADOL HCL [Concomitant]
     Dosage: UNK
     Dates: start: 20060709
  9. YAZ [Suspect]
     Indication: ORAL CONTRACEPTION
     Dosage: 1 TAB(S), 1X/DAY [DAILY DOSE: 1 TAB(S)] [TOTAL DOSE: 13 TAB(S)]
     Route: 048
     Dates: start: 20030101, end: 20060601
  10. YAZ [Suspect]
     Indication: MENSTRUAL CYCLE MANAGEMENT
  11. ZOFRAN [Concomitant]
     Dosage: UNK
     Dates: start: 20060709
  12. YASMIN [Suspect]
     Indication: CONTRACEPTION
     Route: 048
     Dates: start: 20030501, end: 20060601
  13. ZITHROMAX [Concomitant]
     Dosage: UNK
     Dates: start: 20060705
  14. ALEVE COLD AND SINUS [Concomitant]
     Indication: NASAL CONGESTION
  15. SKELAXIN [Concomitant]
  16. MORPHINE [Concomitant]
     Dosage: UNK

REACTIONS (5)
  - PULMONARY EMBOLISM [None]
  - PULMONARY INFARCTION [None]
  - CHEST PAIN [None]
  - DYSPNOEA [None]
  - DEEP VEIN THROMBOSIS [None]
